FAERS Safety Report 14253646 (Version 1)
Quarter: 2017Q4

REPORT INFORMATION
  Report Type: Spontaneous
  Country: MA (occurrence: MA)
  Receive Date: 20171206
  Receipt Date: 20171206
  Transmission Date: 20180321
  Serious: Yes (Death, Other)
  Sender: FDA-Public Use
  Company Number: MA-CIPLA LTD.-2017MA14754

PATIENT

DRUGS (4)
  1. PEMETREXED. [Suspect]
     Active Substance: PEMETREXED
     Indication: NON-SMALL CELL LUNG CANCER METASTATIC
     Dosage: 500 MG/M2, (900 MG) EVERY 3 WEEKS
  2. VITAMIN B12 [Concomitant]
     Active Substance: CYANOCOBALAMIN
     Indication: PREMEDICATION
     Dosage: UNK
     Route: 065
  3. PACLITAXEL. [Suspect]
     Active Substance: PACLITAXEL
     Indication: NON-SMALL CELL LUNG CANCER METASTATIC
     Dosage: 200 MG/M2, DAYS 1 EVERY 3 WEEKS FOR FOUR CYCLES
  4. CARBOPLATIN. [Suspect]
     Active Substance: CARBOPLATIN
     Indication: NON-SMALL CELL LUNG CANCER METASTATIC
     Dosage: AREA UNDER THE CURVE, 5), EVERY 3 WEEKS FOR FOUR CYCLES
     Route: 065

REACTIONS (4)
  - Death [Fatal]
  - Neuropathy peripheral [Unknown]
  - Renal tubular necrosis [Unknown]
  - Kidney fibrosis [Unknown]
